FAERS Safety Report 21091839 (Version 1)
Quarter: 2022Q3

REPORT INFORMATION
  Report Type: Spontaneous
  Country: US (occurrence: US)
  Receive Date: 20220717
  Receipt Date: 20220717
  Transmission Date: 20221027
  Serious: Yes (Hospitalization, Other)
  Sender: FDA-Public Use
  Company Number: US-PRINSTON PHARMACEUTICAL INC.-2022PRN00242

PATIENT
  Age: 90 Year
  Sex: Female
  Weight: 52.336 kg

DRUGS (3)
  1. DONEPEZIL HYDROCHLORIDE [Suspect]
     Active Substance: DONEPEZIL HYDROCHLORIDE
     Indication: Cognitive disorder
     Dosage: 5 MG, 1X/DAY
     Route: 048
     Dates: start: 20220618, end: 20220623
  2. NORVASC [Concomitant]
     Active Substance: AMLODIPINE BESYLATE
  3. COLACE [Concomitant]
     Active Substance: DOCUSATE SODIUM

REACTIONS (9)
  - Unresponsive to stimuli [Recovered/Resolved]
  - Motor dysfunction [Recovering/Resolving]
  - Hallucination [Not Recovered/Not Resolved]
  - Slow speech [Recovering/Resolving]
  - Drooling [Recovering/Resolving]
  - Aphasia [Recovering/Resolving]
  - Agitation [Recovering/Resolving]
  - Confusional state [Recovering/Resolving]
  - Weight decreased [Recovering/Resolving]

NARRATIVE: CASE EVENT DATE: 20220601
